FAERS Safety Report 17733109 (Version 1)
Quarter: 2020Q2

REPORT INFORMATION
  Report Type: Spontaneous
  Country: CA (occurrence: CA)
  Receive Date: 20200501
  Receipt Date: 20200501
  Transmission Date: 20200714
  Serious: Yes (Other)
  Sender: FDA-Public Use
  Company Number: CA-TEVA-2020-CA-1229338

PATIENT
  Age: 28 Year
  Sex: Male

DRUGS (5)
  1. VINCRISTINE SULFATE. [Suspect]
     Active Substance: VINCRISTINE SULFATE
     Indication: PARAGANGLION NEOPLASM
     Route: 065
  2. LUTETIUM (LU 177) [Suspect]
     Active Substance: LUTETIUM LU-177
     Indication: PARAGANGLION NEOPLASM
     Route: 065
  3. SUNITINIB MALATE. [Suspect]
     Active Substance: SUNITINIB MALATE
     Indication: PARAGANGLION NEOPLASM
     Route: 065
  4. PROCYTOX [Suspect]
     Active Substance: CYCLOPHOSPHAMIDE
     Indication: PARAGANGLION NEOPLASM
     Route: 065
  5. DACARBAZINE. [Suspect]
     Active Substance: DACARBAZINE
     Indication: PARAGANGLION NEOPLASM
     Route: 065

REACTIONS (4)
  - Off label use [Unknown]
  - Toxicity to various agents [Unknown]
  - Neoplasm progression [Unknown]
  - Product use in unapproved indication [Unknown]
